FAERS Safety Report 5705287-0 (Version None)
Quarter: 2008Q2

REPORT INFORMATION
  Report Type: 
  Country: None (occurrence: None)
  Receive Date: 20080410
  Receipt Date: 20080326
  Transmission Date: 20081010
  Serious: Yes (Other)
  Sender: FDA-Public Use
  Company Number: DSU-2008-00463

PATIENT
  Age: 76 Year
  Sex: Female

DRUGS (3)
  1. OLMESARTAN MEDOXOMIL [Suspect]
     Indication: HYPERTENSION
     Dosage: 40 MG (20 MG, BID), PER ORAL
     Route: 048
     Dates: start: 20030326
  2. SELOZOK (METOPROLOL SUCCINATE) (METOPROLOL SUCCINATE) [Concomitant]
  3. PURAN T4 (LEVOTHYROXINE SODIUM) (LEVOTHYROXINE SODIUM) [Concomitant]

REACTIONS (1)
  - VISION BLURRED [None]
